FAERS Safety Report 7835986-6 (Version None)
Quarter: 2011Q4

REPORT INFORMATION
  Report Type: 
  Country: None (occurrence: None)
  Receive Date: 20111024
  Receipt Date: 20101108
  Transmission Date: 20120403
  Serious: No
  Sender: FDA-Public Use
  Company Number: US-ABBOTT-10P-163-0674179-00

PATIENT
  Sex: Female

DRUGS (3)
  1. LUPRON DEPOT [Suspect]
     Dosage: 5 IU
  2. HUMIRA [Suspect]
     Indication: PRODUCT USED FOR UNKNOWN INDICATION
  3. LUPRON DEPOT [Suspect]
     Indication: PRODUCT USED FOR UNKNOWN INDICATION
     Dosage: 10 IU

REACTIONS (6)
  - DISTURBANCE IN ATTENTION [None]
  - ARTHRALGIA [None]
  - ABDOMINAL DISTENSION [None]
  - THIRST [None]
  - FEELING ABNORMAL [None]
  - HEADACHE [None]
